FAERS Safety Report 23324723 (Version 1)
Quarter: 2023Q4

REPORT INFORMATION
  Report Type: Spontaneous
  Country: JP (occurrence: JP)
  Receive Date: 20231221
  Receipt Date: 20231221
  Transmission Date: 20240110
  Serious: Yes (Other)
  Sender: FDA-Public Use
  Company Number: JP-ROCHE-3475276

PATIENT
  Age: 40 Year
  Sex: Male

DRUGS (3)
  1. CAPECITABINE [Suspect]
     Active Substance: CAPECITABINE
     Indication: Rectosigmoid cancer stage IV
     Dosage: FIRST-LINE SYSTEMIC CHEMOTHERAPY
  2. BEVACIZUMAB [Suspect]
     Active Substance: BEVACIZUMAB
     Indication: Rectosigmoid cancer stage IV
     Dosage: FIRST-LINE SYSTEMIC CHEMOTHERAPY
  3. OXALIPLATIN [Suspect]
     Active Substance: OXALIPLATIN
     Indication: Rectosigmoid cancer stage IV
     Dosage: FIRST-LINE SYSTEMIC CHEMOTHERAPY

REACTIONS (1)
  - Ascites [Unknown]
